FAERS Safety Report 7105100-3 (Version None)
Quarter: 2010Q4

REPORT INFORMATION
  Report Type: 
  Country: None (occurrence: None)
  Receive Date: 20101116
  Receipt Date: 20101107
  Transmission Date: 20110411
  Serious: Yes (Other)
  Sender: FDA-Public Use
  Company Number: US-AMGEN-USASP2010004115

PATIENT

DRUGS (2)
  1. NEULASTA [Suspect]
     Indication: NEUTROPENIA
     Dates: start: 20090101
  2. ANTINEOPLASTIC AGENTS [Concomitant]

REACTIONS (2)
  - DIARRHOEA [None]
  - LOSS OF CONSCIOUSNESS [None]
